FAERS Safety Report 4954667-X (Version None)
Quarter: 2006Q1

REPORT INFORMATION
  Report Type: 
  Country: None (occurrence: None)
  Receive Date: 20060327
  Receipt Date: 20060303
  Transmission Date: 20060701
  Serious: Yes (Other)
  Sender: FDA-Public Use
  Company Number: IT-AMGEN-UK171178

PATIENT
  Sex: Female

DRUGS (6)
  1. ARANESP [Suspect]
     Indication: ANAEMIA
     Dates: start: 20050506, end: 20060222
  2. LASIX [Concomitant]
     Route: 048
  3. TRIATEC [Concomitant]
     Route: 048
  4. ZYLORIC [Concomitant]
     Route: 048
  5. DELTACORTENE [Concomitant]
     Route: 048
  6. RANIDIL [Concomitant]

REACTIONS (1)
  - THROMBOPHLEBITIS SUPERFICIAL [None]
